FAERS Safety Report 6019009-X (Version None)
Quarter: 2008Q4

REPORT INFORMATION
  Report Type: 
  Country: None (occurrence: None)
  Receive Date: 20081224
  Receipt Date: 20081216
  Transmission Date: 20090506
  Serious: Yes (Hospitalization, Other)
  Sender: FDA-Public Use
  Company Number: BR-NOVOPROD-282436

PATIENT
  Age: 50 Year
  Sex: Male
  Weight: 112 kg

DRUGS (7)
  1. LEVEMIR [Suspect]
     Indication: INSULIN-REQUIRING TYPE 2 DIABETES MELLITUS
     Dosage: 80 U, QD
  2. NOVORAPID FLEXPEN [Suspect]
     Indication: INSULIN-REQUIRING TYPE 2 DIABETES MELLITUS
     Dosage: 4-6  U, QD
     Dates: start: 20070101, end: 20081201
  3. ATORVASTATIN CALCIUM [Concomitant]
     Dosage: 10 MG, QD
     Route: 048
     Dates: start: 20080101
  4. ENALAPRIL MALEATE [Concomitant]
     Dosage: 10 MG, UNK
     Route: 048
     Dates: start: 20080101
  5. METOPROLOL SUCCINATE [Concomitant]
     Dosage: 100 MG, QD
     Dates: start: 20080101
  6. ACETYLSALICYLIC ACID [Concomitant]
     Dosage: 100 MG, QD
     Route: 048
  7. METFORMIN                          /00082702/ [Concomitant]
     Dosage: 500+500 MG, QD
     Dates: start: 20080101

REACTIONS (4)
  - BLOOD GLUCOSE INCREASED [None]
  - HYPERHIDROSIS [None]
  - SINUS TACHYCARDIA [None]
  - TACHYCARDIA [None]
